FAERS Safety Report 18809000 (Version 2)
Quarter: 2021Q1

REPORT INFORMATION
  Report Type: Spontaneous
  Country: BR (occurrence: BR)
  Receive Date: 20210129
  Receipt Date: 20210204
  Transmission Date: 20210419
  Serious: Yes (Other)
  Sender: FDA-Public Use
  Company Number: NVSC2021BR018196

PATIENT
  Sex: Male

DRUGS (2)
  1. DIOVAN AMLO FIX [Suspect]
     Active Substance: AMLODIPINE\VALSARTAN
     Indication: HYPERTENSION
     Dosage: UNK UNK, UNKNOWN (STARTED 20 YEARS AGO)
     Route: 065
     Dates: start: 2000
  2. DIOVAN AMLO FIX [Suspect]
     Active Substance: AMLODIPINE\VALSARTAN
     Dosage: 330 MG (320/10MG, 28 TABLETS, STARTED 20 YEARS AGO)
     Route: 065

REACTIONS (9)
  - Metastases to lung [Unknown]
  - Metastasis [Unknown]
  - Concomitant disease aggravated [Unknown]
  - Asthenia [Unknown]
  - Metastases to abdominal cavity [Unknown]
  - Depressed mood [Unknown]
  - Blood pressure fluctuation [Unknown]
  - Product availability issue [Unknown]
  - Thyroid cancer [Not Recovered/Not Resolved]

NARRATIVE: CASE EVENT DATE: 2012
